FAERS Safety Report 8376998-6 (Version None)
Quarter: 2012Q2

REPORT INFORMATION
  Report Type: 
  Country: None (occurrence: None)
  Receive Date: 20120521
  Receipt Date: 20120507
  Transmission Date: 20120825
  Serious: Yes (Hospitalization)
  Sender: FDA-Public Use
  Company Number: MLL-2012-00005

PATIENT
  Age: 44 Year
  Sex: Female

DRUGS (5)
  1. SIMVASTATIN [Suspect]
     Indication: PRODUCT USED FOR UNKNOWN INDICATION
     Dosage: 20 MG/DAY, ORAL
     Route: 048
  2. WARFARIN SODIUM [Suspect]
     Indication: PRODUCT USED FOR UNKNOWN INDICATION
     Dosage: 1-6 MG/DAY
  3. ACETAMINOPHEN [Suspect]
     Indication: PRODUCT USED FOR UNKNOWN INDICATION
     Dosage: 650MG, 4TIMES/DAY, ORAL
     Route: 048
  4. CYMBALTA [Suspect]
     Indication: NEURALGIA
     Dosage: 50 MG, ONCE DAILY
  5. CYMBALTA [Suspect]
     Indication: DEPRESSION
     Dosage: 50 MG, ONCE DAILY

REACTIONS (5)
  - ALANINE AMINOTRANSFERASE INCREASED [None]
  - HAEMOGLOBIN DECREASED [None]
  - DRUG INTERACTION [None]
  - INTERNATIONAL NORMALISED RATIO INCREASED [None]
  - ASPARTATE AMINOTRANSFERASE INCREASED [None]
